FAERS Safety Report 12939011 (Version 1)
Quarter: 2016Q4

REPORT INFORMATION
  Report Type: Spontaneous
  Country: SE (occurrence: SE)
  Receive Date: 20161115
  Receipt Date: 20161115
  Transmission Date: 20170207
  Serious: Yes (Disabling)
  Sender: FDA-Public Use
  Company Number: SE-SEPTODONT-201603712

PATIENT
  Age: 42 Year
  Sex: Female

DRUGS (1)
  1. SEPTOCAINE [Suspect]
     Active Substance: ARTICAINE HYDROCHLORIDE\EPINEPHRINE BITARTRATE
     Indication: LOCAL ANAESTHESIA
     Route: 004
     Dates: start: 20160906, end: 20160906

REACTIONS (2)
  - Facial paresis [Unknown]
  - Injection site nerve damage [None]

NARRATIVE: CASE EVENT DATE: 20160906
